FAERS Safety Report 18784606 (Version 1)
Quarter: 2021Q1

REPORT INFORMATION
  Report Type: Spontaneous
  Country: CZ (occurrence: CZ)
  Receive Date: 20210125
  Receipt Date: 20210125
  Transmission Date: 20210419
  Serious: Yes (Other)
  Sender: FDA-Public Use
  Company Number: CZ-BAYER-2021-029684

PATIENT
  Age: 72 Year
  Sex: Male

DRUGS (5)
  1. NEXAVAR [Suspect]
     Active Substance: SORAFENIB
     Indication: HEPATOCELLULAR CARCINOMA
     Dosage: 400 MG, BID
     Dates: start: 201701, end: 2017
  2. STIVARGA [Suspect]
     Active Substance: REGORAFENIB
     Indication: HEPATOCELLULAR CARCINOMA
     Dosage: 160 MG, QD 3 WEEKS ONE, ONE WEEK OFF
     Dates: start: 201906
  3. STIVARGA [Suspect]
     Active Substance: REGORAFENIB
     Indication: HEPATOCELLULAR CARCINOMA
     Dosage: 160 MG, QD 3 WEEKS ONE, ONE WEEK OFF
  4. NEXAVAR [Suspect]
     Active Substance: SORAFENIB
     Indication: HEPATOCELLULAR CARCINOMA
     Dosage: 200 MG, BID
     Dates: start: 201803, end: 201812
  5. STIVARGA [Suspect]
     Active Substance: REGORAFENIB
     Indication: HEPATOCELLULAR CARCINOMA
     Dosage: 120 MG, QD
     Dates: end: 202005

REACTIONS (10)
  - Hepatocellular carcinoma [None]
  - Hepatocellular carcinoma [None]
  - Blood pressure increased [None]
  - Pruritus [Recovered/Resolved]
  - General physical health deterioration [None]
  - Diarrhoea [Recovered/Resolved]
  - Rash [Recovering/Resolving]
  - Abdominal discomfort [Recovered/Resolved]
  - Hypophosphataemia [None]
  - Rash [Not Recovered/Not Resolved]

NARRATIVE: CASE EVENT DATE: 201701
